FAERS Safety Report 6978379-6 (Version None)
Quarter: 2010Q3

REPORT INFORMATION
  Report Type: 
  Country: None (occurrence: None)
  Receive Date: 20100913
  Receipt Date: 20100901
  Transmission Date: 20110219
  Serious: Yes (Other)
  Sender: FDA-Public Use
  Company Number: FR-PFIZER INC-2010112175

PATIENT
  Age: 30 Year
  Sex: Male

DRUGS (2)
  1. ATARAX [Suspect]
     Dosage: 75 MG, DAILY
     Route: 048
     Dates: start: 20100601
  2. ATARAX [Suspect]
     Dosage: 150 MG, DAILY
     Route: 048

REACTIONS (1)
  - URINARY INCONTINENCE [None]
